FAERS Safety Report 8088344-6 (Version None)
Quarter: 2012Q1

REPORT INFORMATION
  Report Type: 
  Country: None (occurrence: None)
  Receive Date: 20120128
  Receipt Date: 20110528
  Transmission Date: 20120608
  Serious: No
  Sender: FDA-Public Use
  Company Number: US-ABBOTT-11P-163-0729229-00

PATIENT
  Age: 34 Year
  Sex: Female

DRUGS (5)
  1. HUMIRA [Suspect]
     Indication: CROHN'S DISEASE
     Dates: start: 20110301
  2. FLAGYL [Concomitant]
     Indication: COLONIC STENOSIS
  3. PHENERGAN [Concomitant]
     Indication: NAUSEA
  4. VITAMIN D AND EXTRA VITAMIN B12 [Concomitant]
     Indication: PRODUCT USED FOR UNKNOWN INDICATION
  5. AMBIEN [Concomitant]
     Indication: INSOMNIA
     Dosage: AT NIGHT

REACTIONS (7)
  - EXTERNAL AUDITORY CANAL ATRESIA [None]
  - FEELING ABNORMAL [None]
  - WEIGHT INCREASED [None]
  - HEADACHE [None]
  - COUGH [None]
  - SINUS HEADACHE [None]
  - EAR DISCOMFORT [None]
